FAERS Safety Report 9973784 (Version 1)
Quarter: 2014Q1

REPORT INFORMATION
  Report Type: Spontaneous
  Country: US (occurrence: US)
  Receive Date: 20140306
  Receipt Date: 20140306
  Transmission Date: 20141002
  Serious: Yes (Other)
  Sender: FDA-Public Use
  Company Number: US-GILEAD-2013-0070753

PATIENT
  Age: 58 Year
  Sex: Male

DRUGS (1)
  1. VIREAD [Suspect]
     Dosage: 300 MG, QD
     Route: 048
     Dates: start: 201101

REACTIONS (1)
  - Drug ineffective [Not Recovered/Not Resolved]
